FAERS Safety Report 9931342 (Version 2)
Quarter: 2014Q1

REPORT INFORMATION
  Report Type: Spontaneous
  Country: GB (occurrence: GB)
  Receive Date: 20140228
  Receipt Date: 20140228
  Transmission Date: 20141002
  Serious: Yes (Hospitalization)
  Sender: FDA-Public Use
  Company Number: GB-009507513-2012SP035394

PATIENT
  Age: 21 Year
  Sex: Female

DRUGS (1)
  1. IMPLANON [Suspect]
     Indication: CONTRACEPTION
     Dosage: LEFT ARM INSERTION, 3 YEARS
     Route: 059
     Dates: start: 20110323, end: 20120614

REACTIONS (4)
  - Adverse event [Unknown]
  - Exposure during pregnancy [Recovered/Resolved]
  - Oropharyngeal pain [Unknown]
  - Urinary tract infection [Unknown]
